FAERS Safety Report 5947140-3 (Version None)
Quarter: 2008Q4

REPORT INFORMATION
  Report Type: 
  Country: None (occurrence: None)
  Receive Date: 20081110
  Receipt Date: 20081029
  Transmission Date: 20090506
  Serious: Yes (Hospitalization)
  Sender: FDA-Public Use
  Company Number: JP-WYE-H03643108

PATIENT
  Age: 41 Year
  Sex: Male

DRUGS (3)
  1. ANCARON [Suspect]
     Indication: CARDIAC ARREST
     Dosage: UNKNOWN
     Route: 042
     Dates: start: 20070401, end: 20070408
  2. ANCARON [Suspect]
     Indication: HYPERTROPHIC CARDIOMYOPATHY
  3. ANCARON [Suspect]
     Indication: VENTRICULAR FIBRILLATION

REACTIONS (1)
  - PULMONARY ALVEOLAR HAEMORRHAGE [None]
